FAERS Safety Report 20125274 (Version 2)
Quarter: 2021Q4

REPORT INFORMATION
  Report Type: Spontaneous
  Country: US (occurrence: US)
  Receive Date: 20211129
  Receipt Date: 20211215
  Transmission Date: 20220303
  Serious: Yes (Other)
  Sender: FDA-Public Use
  Company Number: US-PFIZER INC-202101393809

PATIENT

DRUGS (1)
  1. ROCURONIUM BROMIDE [Suspect]
     Active Substance: ROCURONIUM BROMIDE
     Indication: Endotracheal intubation
     Dosage: 5CC VIAL, 10MG/ML
     Dates: start: 20211015

REACTIONS (2)
  - Drug effect less than expected [Unknown]
  - Cough [Unknown]

NARRATIVE: CASE EVENT DATE: 20211015
